FAERS Safety Report 19604730 (Version 1)
Quarter: 2021Q3

REPORT INFORMATION
  Report Type: Spontaneous
  Country: US (occurrence: US)
  Receive Date: 20210723
  Receipt Date: 20210723
  Transmission Date: 20211014
  Serious: No
  Sender: FDA-Public Use
  Company Number: US-AMGEN-USASP2021110240

PATIENT
  Age: 66 Year
  Sex: Female

DRUGS (3)
  1. PROLIA [Suspect]
     Active Substance: DENOSUMAB
     Indication: OSTEOPOROSIS POSTMENOPAUSAL
     Dosage: 60 MILLIGRAM, Q6MO
     Route: 065
  2. COVID?19 VACCINE [Concomitant]
  3. PROLIA [Suspect]
     Active Substance: DENOSUMAB
     Indication: OSTEOPENIA

REACTIONS (3)
  - Injection site pain [Unknown]
  - Injection site mass [Not Recovered/Not Resolved]
  - Arthritis [Unknown]

NARRATIVE: CASE EVENT DATE: 202101
